FAERS Safety Report 7273529-9 (Version None)
Quarter: 2011Q1

REPORT INFORMATION
  Report Type: 
  Country: None (occurrence: None)
  Receive Date: 20110203
  Receipt Date: 20110127
  Transmission Date: 20110831
  Serious: Yes (Other)
  Sender: FDA-Public Use
  Company Number: US-SANOFI-AVENTIS-2011SA006081

PATIENT
  Age: 72 Year
  Sex: Male

DRUGS (3)
  1. NOVOLOG [Concomitant]
     Dosage: 6 UNITS WITH MEALS
  2. OPTICLICK [Suspect]
     Dates: start: 20080101
  3. LANTUS [Suspect]
     Indication: TYPE 2 DIABETES MELLITUS
     Dosage: 15-20 UNITS
     Route: 058
     Dates: start: 20080101

REACTIONS (1)
  - DEMENTIA ALZHEIMER'S TYPE [None]
